FAERS Safety Report 7298968-1 (Version None)
Quarter: 2011Q1

REPORT INFORMATION
  Report Type: 
  Country: None (occurrence: None)
  Receive Date: 20110208
  Receipt Date: 20110128
  Transmission Date: 20110831
  Serious: Yes (Hospitalization)
  Sender: FDA-Public Use
  Company Number: 2010JP006886

PATIENT
  Age: 58 Year
  Sex: Female

DRUGS (5)
  1. BONALON (ALENDRONATE SODIUM)TABLET [Suspect]
     Indication: OSTEOPOROSIS
     Dosage: 5 MG, UID,QD, ORAL
     Route: 048
     Dates: start: 20020501, end: 20080418
  2. RHEUMATREX [Concomitant]
  3. PROGRAF [Suspect]
     Indication: RHEUMATOID ARTHRITIS
     Dosage: 0.5 MG, BID, ORAL
     Route: 048
     Dates: start: 20020501, end: 20080412
  4. PREDNISOLONE [Concomitant]
  5. BREDININ (MIZORIBINE) [Concomitant]

REACTIONS (8)
  - JAW FRACTURE [None]
  - OSTEONECROSIS OF JAW [None]
  - HYPOAESTHESIA [None]
  - TOOTH INFECTION [None]
  - NUTRITIONAL CONDITION ABNORMAL [None]
  - CELLULITIS [None]
  - POOR PERSONAL HYGIENE [None]
  - TOOTH EXTRACTION [None]
